FAERS Safety Report 4708501-3 (Version None)
Quarter: 2005Q3

REPORT INFORMATION
  Report Type: 
  Country: None (occurrence: None)
  Receive Date: 20050707
  Receipt Date: 20050627
  Transmission Date: 20060218
  Serious: Yes (Hospitalization)
  Sender: FDA-Public Use
  Company Number: US-SANOFI-SYNTHELABO-A03200501924

PATIENT
  Sex: Male
  Weight: 100.7 kg

DRUGS (2)
  1. PLAVIX [Suspect]
     Indication: STENT PLACEMENT
     Route: 048
     Dates: start: 20050615, end: 20050619
  2. ASPIRIN [Suspect]
     Indication: STENT PLACEMENT
     Route: 048
     Dates: start: 20050615

REACTIONS (6)
  - ANAPHYLACTIC SHOCK [None]
  - DELUSION [None]
  - FEELING JITTERY [None]
  - GRAND MAL CONVULSION [None]
  - RESPIRATORY ARREST [None]
  - SHOCK [None]
